FAERS Safety Report 5190104-0 (Version None)
Quarter: 2006Q4

REPORT INFORMATION
  Report Type: 
  Country: None (occurrence: None)
  Receive Date: 20061222
  Receipt Date: 20061218
  Transmission Date: 20070319
  Serious: Yes (Other)
  Sender: FDA-Public Use
  Company Number: US-JNJFOC-20061205157

PATIENT
  Age: 6 Year
  Sex: Female

DRUGS (2)
  1. CHILDRENS TYLENOL PLUS COLD AND COUGH ORAL [Suspect]
     Indication: NASOPHARYNGITIS
  2. NOVOLOG [Concomitant]
     Indication: DIABETES MELLITUS
     Dosage: DAILY

REACTIONS (1)
  - BLOOD GLUCOSE INCREASED [None]
